FAERS Safety Report 5149255-9 (Version None)
Quarter: 2006Q4

REPORT INFORMATION
  Report Type: 
  Country: None (occurrence: None)
  Receive Date: 20061113
  Receipt Date: 20051006
  Transmission Date: 20070319
  Serious: No
  Sender: FDA-Public Use
  Company Number: 422256

PATIENT
  Age: 75 Year
  Sex: Male

DRUGS (4)
  1. COREG [Suspect]
     Indication: DRUG USE FOR UNKNOWN INDICATION
     Dosage: 3.125MG TWICE PER DAY
     Route: 048
  2. LIPITOR [Concomitant]
  3. ASPIRIN [Concomitant]
  4. ALTACE [Concomitant]

REACTIONS (1)
  - ARTHRALGIA [None]
